FAERS Safety Report 7585886-4 (Version None)
Quarter: 2011Q2

REPORT INFORMATION
  Report Type: 
  Country: None (occurrence: None)
  Receive Date: 20110603
  Receipt Date: 20110218
  Transmission Date: 20111010
  Serious: No
  Sender: FDA-Public Use
  Company Number: 201012058

PATIENT
  Age: 53 Year
  Sex: Female
  Weight: 52.1637 kg

DRUGS (1)
  1. XIAFLEX [Suspect]
     Indication: DUPUYTREN'S CONTRACTURE
     Dosage: 0.58 MG, 1 IN 1 D, INTRALESIONAL
     Route: 026
     Dates: start: 20101025, end: 20101025

REACTIONS (2)
  - LYMPHADENITIS [None]
  - CONTUSION [None]
